FAERS Safety Report 23307862 (Version 1)
Quarter: 2023Q4

REPORT INFORMATION
  Report Type: Spontaneous
  Country: TH (occurrence: TH)
  Receive Date: 20231218
  Receipt Date: 20231218
  Transmission Date: 20240110
  Serious: Yes (Hospitalization, Other)
  Sender: FDA-Public Use
  Company Number: TH-ASTELLAS-2023US037174

PATIENT
  Age: 42 Year
  Sex: Female
  Weight: 64 kg

DRUGS (14)
  1. TACROLIMUS [Suspect]
     Active Substance: TACROLIMUS
     Indication: Immunosuppression
     Dosage: 1 MG, UNKNOWN FREQ. D151 (M5)
     Route: 065
     Dates: start: 20230621
  2. TACROLIMUS [Suspect]
     Active Substance: TACROLIMUS
     Dosage: 1.5 MG, UNKNOWN FREQ. D158
     Route: 065
     Dates: start: 20230628
  3. TACROLIMUS [Suspect]
     Active Substance: TACROLIMUS
     Dosage: 1 MG, UNKNOWN FREQ. D165
     Route: 065
     Dates: start: 20230705
  4. TACROLIMUS [Suspect]
     Active Substance: TACROLIMUS
     Dosage: 0.5 MG, UNKNOWN FREQ. D170-D179(M6)
     Route: 065
     Dates: start: 20230710, end: 20230719
  5. TACROLIMUS [Suspect]
     Active Substance: TACROLIMUS
     Dosage: 1 MG, UNKNOWN FREQ. D186-D194
     Route: 065
     Dates: start: 20230726, end: 20230803
  6. TACROLIMUS [Suspect]
     Active Substance: TACROLIMUS
     Dosage: 0.5 MG, UNKNOWN FREQ. D200-D287
     Route: 065
     Dates: start: 20230809, end: 20231104
  7. TACROLIMUS [Suspect]
     Active Substance: TACROLIMUS
     Dosage: 1 MG, UNKNOWN FREQ. D294
     Route: 065
     Dates: start: 20231111
  8. TACROLIMUS [Suspect]
     Active Substance: TACROLIMUS
     Dosage: 1.5 MG, UNKNOWN FREQ. D300
     Route: 065
     Dates: start: 20231117
  9. BASILIXIMAB [Concomitant]
     Active Substance: BASILIXIMAB
     Indication: Product used for unknown indication
     Dosage: UNK UNK, UNKNOWN FREQ.
     Route: 065
  10. PREDNISOLONE [Concomitant]
     Active Substance: PREDNISOLONE
     Indication: Immunosuppression
     Dosage: UNK UNK, UNKNOWN FREQ.
     Route: 065
  11. EVEROLIMUS [Concomitant]
     Active Substance: EVEROLIMUS
     Indication: Product used for unknown indication
     Dosage: UNK UNK, UNKNOWN FREQ.
     Route: 065
     Dates: start: 20230823
  12. EVEROLIMUS [Concomitant]
     Active Substance: EVEROLIMUS
     Dosage: 2 MG, UNKNOWN FREQ. D221
     Route: 065
     Dates: start: 20230830
  13. EVEROLIMUS [Concomitant]
     Active Substance: EVEROLIMUS
     Dosage: 1.5 MG, UNKNOWN FREQ. D228
     Route: 065
     Dates: start: 20230906
  14. EVEROLIMUS [Concomitant]
     Active Substance: EVEROLIMUS
     Dosage: 1 MG, UNKNOWN FREQ. D242-D300
     Route: 065
     Dates: start: 20230920, end: 20231117

REACTIONS (12)
  - Transplant rejection [Recovered/Resolved]
  - Toxicity to various agents [Recovered/Resolved]
  - Complications of transplanted kidney [Recovered/Resolved]
  - Lung infiltration [Recovered/Resolved]
  - Moraxella infection [Unknown]
  - Acinetobacter test positive [Unknown]
  - Pneumonia bacterial [Unknown]
  - Oral candidiasis [Unknown]
  - Candida infection [Unknown]
  - Respiratory moniliasis [Unknown]
  - Pyuria [Unknown]
  - Urinary tract infection fungal [Unknown]

NARRATIVE: CASE EVENT DATE: 20231027
